FAERS Safety Report 11145414 (Version 1)
Quarter: 2015Q2

REPORT INFORMATION
  Report Type: Report from Study
  Country: US (occurrence: US)
  Receive Date: 20150528
  Receipt Date: 20150528
  Transmission Date: 20150821
  Serious: No
  Sender: FDA-Public Use
  Company Number: US-CELGENEUS-USA-2015053322

PATIENT

DRUGS (1)
  1. THALOMID [Suspect]
     Active Substance: THALIDOMIDE
     Indication: PLASMA CELL MYELOMA
     Route: 048

REACTIONS (6)
  - Increased appetite [Unknown]
  - Weight increased [Unknown]
  - Glossodynia [Unknown]
  - Asthenia [Unknown]
  - Rash [Unknown]
  - Initial insomnia [Unknown]
